FAERS Safety Report 13472213 (Version 3)
Quarter: 2017Q2

REPORT INFORMATION
  Report Type: Spontaneous
  Country: US (occurrence: US)
  Receive Date: 20170424
  Receipt Date: 20170531
  Transmission Date: 20170830
  Serious: Yes (Hospitalization, Other)
  Sender: FDA-Public Use
  Company Number: US-IPSEN BIOPHARMACEUTICALS, INC.-2017-03196

PATIENT
  Age: 62 Year
  Sex: Male
  Weight: 97.98 kg

DRUGS (34)
  1. SOMATULINE DEPOT [Suspect]
     Active Substance: LANREOTIDE ACETATE
     Indication: ACROMEGALY
     Dosage: 90 MG
     Route: 030
  2. LIOTHYRONINE [Concomitant]
     Active Substance: LIOTHYRONINE
  3. IBUPROFEN. [Concomitant]
     Active Substance: IBUPROFEN
  4. OXYCODONE AND ACETAMINOPHEN [Concomitant]
     Active Substance: ACETAMINOPHEN\OXYCODONE HYDROCHLORIDE
  5. POTASSIUM [Concomitant]
     Active Substance: POTASSIUM
  6. PROMETHEGAN [Concomitant]
     Active Substance: PROMETHAZINE HYDROCHLORIDE
  7. FUROSEMIDE. [Concomitant]
     Active Substance: FUROSEMIDE
  8. PREDNISONE. [Concomitant]
     Active Substance: PREDNISONE
  9. IRON [Concomitant]
     Active Substance: IRON
  10. AZOR [Concomitant]
     Active Substance: AMLODIPINE BESYLATE\OLMESARTAN MEDOXOMIL
  11. HCTZ [Concomitant]
     Active Substance: HYDROCHLOROTHIAZIDE
  12. BUDEPRION [Concomitant]
     Active Substance: BUPROPION HYDROCHLORIDE
  13. VITAMIN B12 [Concomitant]
     Active Substance: CYANOCOBALAMIN
  14. VITAMIN D [Concomitant]
     Active Substance: CHOLECALCIFEROL
  15. TRADJENTA [Concomitant]
     Active Substance: LINAGLIPTIN
  16. METFORMIN [Concomitant]
     Active Substance: METFORMIN HYDROCHLORIDE
  17. PRAMIPEXOLE. [Concomitant]
     Active Substance: PRAMIPEXOLE
  18. LUNESTA [Concomitant]
     Active Substance: ESZOPICLONE
  19. CYCLOBENZAPRINE. [Concomitant]
     Active Substance: CYCLOBENZAPRINE
  20. DEXAMETH PRO INJECTION [Concomitant]
  21. SIMVASTATIN. [Concomitant]
     Active Substance: SIMVASTATIN
  22. VIAGRA [Concomitant]
     Active Substance: SILDENAFIL CITRATE
  23. MIRAPEX [Concomitant]
     Active Substance: PRAMIPEXOLE DIHYDROCHLORIDE
  24. CLONIDINE. [Concomitant]
     Active Substance: CLONIDINE
  25. LAMOTRIGINE. [Concomitant]
     Active Substance: LAMOTRIGINE
     Indication: HYPOMANIA
  26. AMLODIPINE [Concomitant]
     Active Substance: AMLODIPINE BESYLATE
  27. TESTOST CYP INJECTION [Concomitant]
  28. LORAZEPAM. [Concomitant]
     Active Substance: LORAZEPAM
  29. BENICAR [Concomitant]
     Active Substance: OLMESARTAN MEDOXOMIL
  30. SYNTHROID [Concomitant]
     Active Substance: LEVOTHYROXINE SODIUM
     Indication: THYROID CANCER
  31. GLIMEPIRIDE. [Concomitant]
     Active Substance: GLIMEPIRIDE
  32. LOSARTAN POTASSIUM. [Concomitant]
     Active Substance: LOSARTAN POTASSIUM
  33. LEVOTHYROXINE. [Concomitant]
     Active Substance: LEVOTHYROXINE
  34. DHEA [Concomitant]
     Active Substance: PRASTERONE

REACTIONS (7)
  - Ulnar nerve injury [Unknown]
  - Incorrect route of drug administration [Unknown]
  - Urinary tract infection [Recovered/Resolved]
  - Urinary retention [Not Recovered/Not Resolved]
  - Sepsis [Recovering/Resolving]
  - Aortic aneurysm [Unknown]
  - Spinal disorder [Unknown]

NARRATIVE: CASE EVENT DATE: 200805
